FAERS Safety Report 5021832-5 (Version None)
Quarter: 2006Q2

REPORT INFORMATION
  Report Type: 
  Country: None (occurrence: None)
  Receive Date: 20060425
  Receipt Date: 20060217
  Transmission Date: 20061013
  Serious: No
  Sender: FDA-Public Use
  Company Number: 221727

PATIENT
  Age: 42 Year
  Sex: Female
  Weight: 56.2 kg

DRUGS (11)
  1. XOLAIR [Suspect]
     Indication: ASTHMA
     Dosage: 300 MG, Q4W, INTRAMUSCULAR
     Route: 030
     Dates: start: 20041123
  2. SINGULAIR [Concomitant]
  3. ALLEGRA [Concomitant]
  4. SINUVENT (GUAIFENESIN, PHENYLPROPANOLAMINE HYDROCHLORIDE) [Concomitant]
  5. ADALIN (CARBROMAL) [Concomitant]
  6. ALBUTEROL NEBULIZER (ALBUTEROL/ALBUTEROL SULFATE) [Concomitant]
  7. ATROVENT [Concomitant]
  8. BETAMETHASONE [Concomitant]
  9. DOSTINEX [Concomitant]
  10. SYNTHROID (LEVOTHTYROXINE SODIUM) [Concomitant]
  11. ADVAIR DISKUS 100/50 [Concomitant]

REACTIONS (1)
  - MALIGNANT MELANOMA [None]
